FAERS Safety Report 19706257 (Version 1)
Quarter: 2021Q3

REPORT INFORMATION
  Report Type: Spontaneous
  Country: US (occurrence: US)
  Receive Date: 20210817
  Receipt Date: 20210817
  Transmission Date: 20211014
  Serious: Yes (Hospitalization)
  Sender: FDA-Public Use
  Company Number: US-ROCHE-2889346

PATIENT
  Age: 71 Year
  Sex: Male
  Weight: 116.4 kg

DRUGS (7)
  1. VENETOCLAX. [Suspect]
     Active Substance: VENETOCLAX
     Indication: CHRONIC LYMPHOCYTIC LEUKAEMIA
     Route: 048
  2. GAZYVA [Suspect]
     Active Substance: OBINUTUZUMAB
     Dosage: ON DAY 8, CYCLE 1 (1000 MG)
     Route: 042
  3. IMBRUVICA [Suspect]
     Active Substance: IBRUTINIB
     Indication: CHRONIC LYMPHOCYTIC LEUKAEMIA
     Dosage: ON DAYS 1?28
     Route: 048
     Dates: start: 20190424, end: 20191211
  4. GAZYVA [Suspect]
     Active Substance: OBINUTUZUMAB
     Dosage: ON DAYS 1, CYCLE 2?6 (1000 MG)
     Route: 042
     Dates: end: 20190904
  5. GAZYVA [Suspect]
     Active Substance: OBINUTUZUMAB
     Indication: CHRONIC LYMPHOCYTIC LEUKAEMIA
     Dosage: ON DAY 1, CYCLE 1 (100 MG)
     Route: 042
     Dates: start: 20190424
  6. GAZYVA [Suspect]
     Active Substance: OBINUTUZUMAB
     Dosage: ON DAY 1 CYCLE (900 MG)
     Route: 042
  7. GAZYVA [Suspect]
     Active Substance: OBINUTUZUMAB
     Dosage: ON DAY 15, CYCLE 1 (1000 MG)
     Route: 042

REACTIONS (2)
  - Neck mass [Unknown]
  - Skin squamous cell carcinoma metastatic [Unknown]

NARRATIVE: CASE EVENT DATE: 20210218
